FAERS Safety Report 4489532-8 (Version None)
Quarter: 2004Q4

REPORT INFORMATION
  Report Type: 
  Country: None (occurrence: None)
  Receive Date: 20041028
  Receipt Date: 20041012
  Transmission Date: 20050328
  Serious: Yes (Other)
  Sender: FDA-Public Use
  Company Number: 2004-BP-09758RO

PATIENT
  Age: 75 Year
  Sex: Male

DRUGS (8)
  1. DEXAMETHASONE [Suspect]
     Indication: MULTIPLE MYELOMA
     Dosage: CYCLIC: 40 MG/DAY, PO
     Route: 048
     Dates: start: 20020211, end: 20020402
  2. GENASENSE [Suspect]
     Indication: MULTIPLE MYELOMA
     Dosage: CYCLIC: 7 MG/KG, IV
     Route: 042
     Dates: start: 20020208, end: 20020402
  3. GENASENSE [Suspect]
  4. AMLODIPINE [Concomitant]
  5. MULTIVITAMIN [Concomitant]
  6. IPRATROPIUM BROMIDE [Concomitant]
  7. PROCHLORPERAZINE [Concomitant]
  8. MAGNESIUM (MAGNESIUM) [Concomitant]

REACTIONS (3)
  - MALIGNANT NEOPLASM PROGRESSION [None]
  - PYREXIA [None]
  - RENAL FAILURE [None]
